APPROVED DRUG PRODUCT: ARIPIPRAZOLE
Active Ingredient: ARIPIPRAZOLE
Strength: 20MG
Dosage Form/Route: TABLET;ORAL
Application: A206383 | Product #005 | TE Code: AB
Applicant: SCIEGEN PHARMACEUTICALS INC
Approved: Sep 29, 2016 | RLD: No | RS: No | Type: RX